FAERS Safety Report 21302753 (Version 1)
Quarter: 2022Q3

REPORT INFORMATION
  Report Type: Spontaneous
  Country: CN (occurrence: CN)
  Receive Date: 20220907
  Receipt Date: 20220907
  Transmission Date: 20221026
  Serious: Yes (Other)
  Sender: FDA-Public Use
  Company Number: None

PATIENT
  Age: 18 Year
  Sex: Female
  Weight: 43 kg

DRUGS (10)
  1. IFOSFAMIDE [Suspect]
     Active Substance: IFOSFAMIDE
     Indication: Osteosarcoma
     Dosage: 3 G, QD (DILUTED WITH 0.9% SODIUM CHLORIDE 500 ML, FIRST CYCLE OF MIAP REGIMEN DAY 1-5)
     Route: 041
     Dates: start: 20220802, end: 20220806
  2. SODIUM CHLORIDE [Suspect]
     Active Substance: SODIUM CHLORIDE
     Indication: Medication dilution
     Dosage: STRENGTH:0.9%, 500 ML QD INJECTION (DILUTED WITH HOLOXAN 3G)
     Route: 041
     Dates: start: 20220802, end: 20220806
  3. DEXTROSE MONOHYDRATE [Suspect]
     Active Substance: DEXTROSE MONOHYDRATE
     Indication: Medication dilution
     Dosage: 100 ML, QD VIA INTRA-PUMP INJECTION (DILUTED WITH DOXORUBICIN HYDROCHLORIDE LIPOSOME 50 MG)
     Route: 050
     Dates: start: 20220720, end: 20220720
  4. DOXORUBICIN HYDROCHLORIDE [Suspect]
     Active Substance: DOXORUBICIN HYDROCHLORIDE
     Indication: Osteosarcoma
     Dosage: 50 MG, QD VIA INTRA-PUMP INJECTION (DILUTED WITH 5% GLUCOSE 100 ML, FIRST CYCLE OF MAP REGIMEN)
     Route: 050
     Dates: start: 20220720, end: 20220720
  5. CISPLATIN [Suspect]
     Active Substance: CISPLATIN
     Indication: Osteosarcoma
     Dosage: 135 MG, QD (DILUTED WITH 0.9% SODIUM CHLORIDE 500 ML) FIRST CYCLE OF MAP REGIMEN
     Route: 041
     Dates: start: 20220720, end: 20220720
  6. SODIUM CHLORIDE [Suspect]
     Active Substance: SODIUM CHLORIDE
     Indication: Medication dilution
     Dosage: 500 ML QD (DILUTED WITH CISPLATIN 135 MG)
     Route: 041
     Dates: start: 20220720, end: 20220720
  7. RECOMBINANT HUMAN ERYTHROPOIETIN INJECTION (CHO CELL) [Concomitant]
     Indication: Product used for unknown indication
     Dosage: 1 ML, QOD
     Route: 058
     Dates: start: 20220720, end: 20220721
  8. RECOMBINANT HUMAN ERYTHROPOIETIN INJECTION (CHO CELL) [Concomitant]
     Dosage: 1 ML, QOD
     Route: 058
     Dates: start: 20220802, end: 20220808
  9. AI DUO [Concomitant]
     Indication: Prophylaxis
     Dosage: 1 ML ONCE
     Route: 058
     Dates: start: 20220721
  10. AI DUO [Concomitant]
     Indication: White blood cell count decreased

REACTIONS (7)
  - Myelosuppression [Recovering/Resolving]
  - Pyrexia [Recovering/Resolving]
  - Chills [Unknown]
  - Asthenia [Unknown]
  - Dizziness [Unknown]
  - Nausea [Unknown]
  - Vomiting [Unknown]

NARRATIVE: CASE EVENT DATE: 20220808
